FAERS Safety Report 15900066 (Version 1)
Quarter: 2019Q1

REPORT INFORMATION
  Report Type: Spontaneous
  Country: US (occurrence: US)
  Receive Date: 20190201
  Receipt Date: 20190201
  Transmission Date: 20190417
  Serious: No
  Sender: FDA-Public Use
  Company Number: US-B.I. PHARMACEUTICALS,INC./RIDGEFIELD-2019-BI-003686

PATIENT
  Age: 60 Year
  Sex: Male

DRUGS (1)
  1. SYNJARDY [Suspect]
     Active Substance: EMPAGLIFLOZIN\METFORMIN HYDROCHLORIDE
     Indication: TYPE 2 DIABETES MELLITUS
     Dosage: 1 TABLET TWICE DAILY; FORM STRENGTH: 12.5 MG / 1000 MG; FORM: TABLE ACTION(S) TAKEN : DRUG WITHDRAWN
     Route: 048
     Dates: end: 20190124

REACTIONS (2)
  - Arthralgia [Unknown]
  - Fatigue [Unknown]
